FAERS Safety Report 9002733 (Version 1)
Quarter: 2013Q1

REPORT INFORMATION
  Report Type: Spontaneous
  Country: US (occurrence: US)
  Receive Date: 20130107
  Receipt Date: 20130107
  Transmission Date: 20140127
  Serious: No
  Sender: FDA-Public Use
  Company Number: US-GLAXOSMITHKLINE-A0996477A

PATIENT
  Age: 41 Year
  Sex: Female

DRUGS (7)
  1. BENLYSTA [Suspect]
     Indication: SYSTEMIC LUPUS ERYTHEMATOSUS
     Route: 042
     Dates: start: 20121003
  2. PLAQUENIL [Concomitant]
  3. MYCOPHENOLATE MOFETIL [Concomitant]
  4. TORADOL [Concomitant]
  5. VIT D [Concomitant]
  6. DEXILANT [Concomitant]
  7. BENADRYL [Concomitant]
     Route: 048

REACTIONS (4)
  - Pruritus [Recovered/Resolved]
  - Urticaria [Unknown]
  - Paraesthesia oral [Unknown]
  - Throat tightness [Unknown]
